FAERS Safety Report 9486857 (Version 3)
Quarter: 2014Q2

REPORT INFORMATION
  Report Type: Spontaneous
  Country: US (occurrence: US)
  Receive Date: 20130829
  Receipt Date: 20140428
  Transmission Date: 20141212
  Serious: Yes (Hospitalization)
  Sender: FDA-Public Use
  Company Number: US-B.I. PHARMACEUTICALS,INC./RIDGEFIELD-2013-BI-26531BP

PATIENT
  Age: 72 Year
  Sex: Female
  Weight: 92.53 kg

DRUGS (13)
  1. PRADAXA [Suspect]
     Indication: ATRIAL FIBRILLATION
     Dosage: 300 MG
     Route: 048
     Dates: start: 20110629, end: 201107
  2. PRADAXA [Suspect]
     Dosage: 300 MG
     Route: 048
     Dates: start: 20120124, end: 201204
  3. ASPIRIN [Concomitant]
     Route: 065
  4. CARVEDILOL [Concomitant]
     Route: 065
     Dates: start: 20071115, end: 20130527
  5. FISH OIL [Concomitant]
     Route: 065
  6. ISOSORBIDE [Concomitant]
     Route: 065
     Dates: start: 20071025, end: 20130524
  7. LISINOPRIL [Concomitant]
     Route: 065
     Dates: start: 20070821, end: 20120329
  8. METFORMIN HCL [Concomitant]
     Route: 065
     Dates: start: 20100606, end: 20120326
  9. MULTIVITAMIN [Concomitant]
     Route: 065
  10. POTASSIUM CHLORIDE [Concomitant]
     Route: 065
     Dates: start: 20080714, end: 20120323
  11. CLONIDINE HCL [Concomitant]
     Route: 065
     Dates: start: 20100413, end: 20130603
  12. FUROSEMIDE [Concomitant]
     Route: 065
     Dates: start: 20070821, end: 20130603
  13. SIMVASTATIN [Concomitant]
     Route: 065
     Dates: start: 20120327, end: 20130603

REACTIONS (3)
  - Gastrointestinal haemorrhage [Unknown]
  - Rectal haemorrhage [Unknown]
  - Gastrointestinal tract irritation [Unknown]
